FAERS Safety Report 9275128 (Version 3)
Quarter: 2013Q3

REPORT INFORMATION
  Report Type: Spontaneous
  Country: US (occurrence: US)
  Receive Date: 20130507
  Receipt Date: 20130920
  Transmission Date: 20140515
  Serious: Yes (Disabling, Other)
  Sender: FDA-Public Use
  Company Number: US-PFIZER INC-2013140304

PATIENT
  Age: 40 Year
  Sex: Male
  Weight: 109 kg

DRUGS (4)
  1. ARICEPT [Suspect]
     Dosage: 1 DF, 1X/DAY
     Route: 048
  2. VIAGRA [Suspect]
     Indication: ERECTILE DYSFUNCTION
     Dosage: 1 DF (EVERY 3-4 DAYS)
     Route: 048
     Dates: start: 2013
  3. DEPAKOTE [Concomitant]
     Indication: CONVULSION
     Dosage: 1000 MG, 1X/DAY
     Route: 048
     Dates: start: 2004
  4. DEPAKOTE [Concomitant]
     Indication: BIPOLAR DISORDER

REACTIONS (8)
  - Road traffic accident [Unknown]
  - Subdural haematoma [Unknown]
  - Brain oedema [Unknown]
  - Coma [Recovered/Resolved]
  - Amnesia [Unknown]
  - Blood testosterone decreased [Unknown]
  - Pre-existing condition improved [Unknown]
  - Therapeutic response unexpected [Unknown]
